FAERS Safety Report 15324724 (Version 1)
Quarter: 2018Q3

REPORT INFORMATION
  Report Type: Spontaneous
  Country: US (occurrence: US)
  Receive Date: 20180822
  Receipt Date: 20180822
  Transmission Date: 20181010
  Serious: Yes (Hospitalization)
  Sender: FDA-Public Use
  Company Number: None

PATIENT
  Age: 34 Year
  Sex: Female

DRUGS (21)
  1. IMITREX [Concomitant]
     Active Substance: SUMATRIPTAN SUCCINATE
  2. TOPAMAX [Concomitant]
     Active Substance: TOPIRAMATE
  3. XELJANZ XR [Suspect]
     Active Substance: TOFACITINIB CITRATE
     Indication: RHEUMATOID ARTHRITIS
     Route: 048
     Dates: start: 20170817
  4. FLONASE [Concomitant]
     Active Substance: FLUTICASONE PROPIONATE
  5. SENOKOT [Concomitant]
     Active Substance: SENNOSIDES
  6. WELLBUTRIN [Concomitant]
     Active Substance: BUPROPION HYDROCHLORIDE
  7. GABAPENTIN. [Concomitant]
     Active Substance: GABAPENTIN
  8. MULTI?VITAMIN [Concomitant]
     Active Substance: .ALPHA.-TOCOPHEROL ACETATE, DL-\ASCORBIC ACID\CYANOCOBALAMIN\FLUORIDE ION\FOLIC ACID\NIACIN\PYRIDOXINE\RIBOFLAVIN\THIAMINE\VITAMIN A\VITAMIN D
  9. CALCIUM [Concomitant]
     Active Substance: CALCIUM
  10. DEXILANT [Concomitant]
     Active Substance: DEXLANSOPRAZOLE
  11. FOLIC ACID. [Concomitant]
     Active Substance: FOLIC ACID
  12. OXYCODONE AND ACETAMINOPHEN [Concomitant]
     Active Substance: ACETAMINOPHEN\OXYCODONE HYDROCHLORIDE
  13. RELPAX [Concomitant]
     Active Substance: ELETRIPTAN HYDROBROMIDE
  14. PROCHLORPER [Concomitant]
  15. METHOTREXATE. [Concomitant]
     Active Substance: METHOTREXATE
  16. ALIGN [Concomitant]
     Active Substance: BIFIDOBACTERIUM LONGUM SUBSP. INFANTIS
  17. ALLEGRA [Concomitant]
     Active Substance: FEXOFENADINE HYDROCHLORIDE
  18. PLAQUENIL [Concomitant]
     Active Substance: HYDROXYCHLOROQUINE SULFATE
  19. TURMERIC [Concomitant]
     Active Substance: HERBALS\TURMERIC
  20. ZOFRAN [Concomitant]
     Active Substance: ONDANSETRON HYDROCHLORIDE
  21. PROAIR HFA [Concomitant]
     Active Substance: ALBUTEROL SULFATE

REACTIONS (2)
  - Intentional dose omission [None]
  - Rheumatoid arthritis [None]

NARRATIVE: CASE EVENT DATE: 20180706
